FAERS Safety Report 15647046 (Version 2)
Quarter: 2018Q4

REPORT INFORMATION
  Report Type: Spontaneous
  Country: US (occurrence: US)
  Receive Date: 20181122
  Receipt Date: 20181122
  Transmission Date: 20190205
  Serious: No
  Sender: FDA-Public Use
  Company Number: US-TEVA-2018-US-976877

PATIENT
  Sex: Male

DRUGS (1)
  1. CARVEDILOL TEVA [Suspect]
     Active Substance: CARVEDILOL
     Route: 065

REACTIONS (1)
  - Blood pressure increased [Unknown]
